FAERS Safety Report 20278769 (Version 1)
Quarter: 2022Q1

REPORT INFORMATION
  Report Type: Spontaneous
  Country: US (occurrence: US)
  Receive Date: 20220103
  Receipt Date: 20220103
  Transmission Date: 20220423
  Serious: Yes (Other)
  Sender: FDA-Public Use
  Company Number: US-INCYTE CORPORATION-2021IN012238

PATIENT

DRUGS (1)
  1. JAKAFI [Suspect]
     Active Substance: RUXOLITINIB
     Indication: Polycythaemia vera
     Dosage: 5 MILLIGRAM, QD
     Route: 048
     Dates: start: 20201225

REACTIONS (5)
  - Hallucination [Unknown]
  - Arthritis [Unknown]
  - Spinal stenosis [Unknown]
  - Sciatica [Unknown]
  - Urinary tract infection [Unknown]
